FAERS Safety Report 10165501 (Version 2)
Quarter: 2014Q2

REPORT INFORMATION
  Report Type: Spontaneous
  Country: US (occurrence: US)
  Receive Date: 20140510
  Receipt Date: 20140510
  Transmission Date: 20141212
  Serious: No
  Sender: FDA-Public Use
  Company Number: US-BRISTOL-MYERS SQUIBB COMPANY-19840404

PATIENT
  Age: 59 Year
  Sex: Male
  Weight: 88.43 kg

DRUGS (10)
  1. BYDUREON  2MG SUSPENSION [Suspect]
     Indication: TYPE 1 DIABETES MELLITUS
     Route: 058
     Dates: start: 20131119
  2. SLO-NIACIN [Concomitant]
  3. RED YEAST RICE [Concomitant]
  4. VITAMIN C [Concomitant]
  5. DHEA [Concomitant]
  6. LANTUS [Concomitant]
     Dosage: 40UNITS QHS
  7. VENLAFAXINE HCL [Concomitant]
     Dosage: 1-2 TABLETS A WEEK
  8. ALEVE [Concomitant]
  9. OMEGA 3 FISH OIL [Concomitant]
  10. ZINC [Concomitant]

REACTIONS (4)
  - Headache [Unknown]
  - Vision blurred [Not Recovered/Not Resolved]
  - Eye pain [Unknown]
  - Dizziness [Unknown]
